FAERS Safety Report 25047893 (Version 2)
Quarter: 2025Q3

REPORT INFORMATION
  Report Type: Spontaneous
  Country: US (occurrence: US)
  Receive Date: 20250306
  Receipt Date: 20250802
  Transmission Date: 20251020
  Serious: Yes (Life-Threatening, Hospitalization, Other)
  Sender: ALEXION PHARMACEUTICALS
  Company Number: US-ASTRAZENECA-202502USA025843US

PATIENT
  Age: 74 Year
  Sex: Male
  Weight: 100.05 kg

DRUGS (8)
  1. TAGRISSO [Suspect]
     Active Substance: OSIMERTINIB
     Indication: Lung adenocarcinoma
     Dates: start: 20240830, end: 20250114
  2. PREDNISONE [Concomitant]
     Active Substance: PREDNISONE
     Dosage: 20 MILLIGRAM, QD, TAKE 20 MG P.O.Q. DAY FOR 7 DAYS
     Route: 065
  3. PREDNISONE [Concomitant]
     Active Substance: PREDNISONE
     Dosage: 10 MILLIGRAM, QD, TAKE 10 MG P.O.Q. DAY FOR 7 DAYS
     Route: 065
  4. METOPROLOL TARTRATE [Concomitant]
     Active Substance: METOPROLOL TARTRATE
     Route: 065
  5. VITAMINS [Concomitant]
     Active Substance: VITAMINS
  6. LEVOTHYROXINE [Concomitant]
     Active Substance: LEVOTHYROXINE
  7. DRONEDARONE [Concomitant]
     Active Substance: DRONEDARONE
  8. ATORVASTATIN [Concomitant]
     Active Substance: ATORVASTATIN

REACTIONS (16)
  - Pneumonia [Unknown]
  - Atrial flutter [Unknown]
  - Troponin increased [Unknown]
  - Respiratory failure [Unknown]
  - Pneumonitis [Unknown]
  - Arthralgia [Unknown]
  - Haematoma muscle [Unknown]
  - Respiratory syncytial virus test positive [Unknown]
  - Hypoxia [Unknown]
  - Pneumonia respiratory syncytial viral [Unknown]
  - Atrial fibrillation [Unknown]
  - Pyrexia [Unknown]
  - Abdominal hernia [Unknown]
  - Haemorrhage [Unknown]
  - Stress [Unknown]
  - Hypersensitivity [Unknown]
